FAERS Safety Report 7599541-8 (Version None)
Quarter: 2011Q3

REPORT INFORMATION
  Report Type: 
  Country: None (occurrence: None)
  Receive Date: 20110711
  Receipt Date: 20070709
  Transmission Date: 20111222
  Serious: Yes (Death, Hospitalization, Disabling)
  Sender: FDA-Public Use
  Company Number: US-BAYER-200712156BWH

PATIENT
  Age: 81 Year
  Sex: Male
  Weight: 71.837 kg

DRUGS (22)
  1. IMDUR [Concomitant]
     Dosage: 10 MG, UNK
     Route: 048
  2. XANAX [Concomitant]
     Dosage: 0.25 MG, UNK
     Route: 048
  3. CONTRAST MEDIA [Concomitant]
     Indication: ANGIOGRAM
  4. ACETYLSALICYLIC ACID SRT [Concomitant]
     Dosage: 81 MG/24HR, UNK
     Route: 048
  5. METOPROLOL TARTRATE [Concomitant]
     Dosage: 25 MG, UNK
     Route: 048
  6. ZOCOR [Concomitant]
     Dosage: 80 MG, UNK
     Route: 048
  7. ESMOLOL [Concomitant]
     Dosage: UNK
     Route: 042
     Dates: start: 20060426, end: 20060426
  8. PAVULON [Concomitant]
     Dosage: UNK
     Route: 042
     Dates: start: 20060426, end: 20060426
  9. INSULIN [Concomitant]
     Route: 058
  10. LASIX [Concomitant]
     Indication: POLYURIA
     Dosage: 40 MG/24HR, UNK
     Route: 048
  11. VERSED [Concomitant]
     Dosage: UNK
     Route: 042
     Dates: start: 20060426, end: 20060426
  12. TRASYLOL [Suspect]
     Indication: MITRAL VALVE REPAIR
     Dosage: 200 ML LOADING DOSE
     Route: 042
     Dates: start: 20060424, end: 20060424
  13. PRIMACOR [Concomitant]
     Dosage: TITRATED
     Route: 042
     Dates: start: 20060426, end: 20060426
  14. GLIPIZIDE [Concomitant]
     Dosage: 10 MG/24HR, UNK
     Route: 048
  15. DOPAMINE HCL [Concomitant]
     Dosage: TITRATED
     Route: 042
     Dates: start: 20060426, end: 20060426
  16. VANCOMYCIN [Concomitant]
     Dosage: UNK
     Route: 042
     Dates: start: 20060426, end: 20060426
  17. PHENYLEPHRINE HCL [Concomitant]
     Dosage: UNK
     Route: 042
     Dates: start: 20060426, end: 20060426
  18. ENALAPRIL MALEATE [Concomitant]
     Indication: HYPERTENSION
     Dosage: 5 MG, BID
     Route: 048
  19. PROPOFOL [Concomitant]
     Dosage: UNK
     Route: 042
     Dates: start: 20060426, end: 20060426
  20. TRASYLOL [Suspect]
     Indication: CORONARY ARTERY BYPASS
     Dosage: 1 ML, TEST DOSE
     Route: 042
     Dates: start: 20060424, end: 20060424
  21. TRASYLOL [Suspect]
     Dosage: 50 ML/HOUR INFUSION
     Route: 042
     Dates: start: 20060424, end: 20060424
  22. CONTRAST MEDIA [Concomitant]
     Indication: CATHETERISATION CARDIAC
     Dosage: 175 ML, UNK
     Dates: start: 20060420

REACTIONS (8)
  - FEAR [None]
  - ANHEDONIA [None]
  - PAIN [None]
  - RENAL FAILURE [None]
  - DEPRESSION [None]
  - UNEVALUABLE EVENT [None]
  - INJURY [None]
  - ANXIETY [None]
